FAERS Safety Report 16123103 (Version 4)
Quarter: 2019Q2

REPORT INFORMATION
  Report Type: Report from Study
  Country: US (occurrence: US)
  Receive Date: 20190327
  Receipt Date: 20190627
  Transmission Date: 20190711
  Serious: Yes (Hospitalization, Other)
  Sender: FDA-Public Use
  Company Number: US-B.I. PHARMACEUTICALS,INC./RIDGEFIELD-2016-BI-082068

PATIENT
  Sex: Male

DRUGS (2)
  1. NIFEDIPINE. [Concomitant]
     Active Substance: NIFEDIPINE
     Indication: PRODUCT USED FOR UNKNOWN INDICATION
     Route: 065
  2. OFEV [Suspect]
     Active Substance: NINTEDANIB
     Indication: IDIOPATHIC PULMONARY FIBROSIS
     Route: 048
     Dates: start: 20160919

REACTIONS (26)
  - Thrombosis [Unknown]
  - Nausea [Not Recovered/Not Resolved]
  - Cough [Unknown]
  - Pneumonia [Unknown]
  - Nasopharyngitis [Unknown]
  - Diarrhoea [Not Recovered/Not Resolved]
  - Flatulence [Not Recovered/Not Resolved]
  - Feeling cold [Unknown]
  - Weight decreased [Unknown]
  - Oxygen therapy [Not Recovered/Not Resolved]
  - Asthenia [Not Recovered/Not Resolved]
  - Muscle spasms [Unknown]
  - Viral infection [Not Recovered/Not Resolved]
  - Formication [Unknown]
  - Fatigue [Unknown]
  - Increased tendency to bruise [Unknown]
  - Sinus disorder [Unknown]
  - Diarrhoea [Unknown]
  - Respiratory tract congestion [Unknown]
  - Dyspnoea exertional [Unknown]
  - Contusion [Unknown]
  - Dyspnoea [Unknown]
  - Memory impairment [Unknown]
  - Productive cough [Unknown]
  - Abdominal discomfort [Unknown]
  - Constipation [Unknown]
